FAERS Safety Report 12748174 (Version 1)
Quarter: 2016Q3

REPORT INFORMATION
  Report Type: Report from Study
  Country: AR (occurrence: AR)
  Receive Date: 20160915
  Receipt Date: 20160915
  Transmission Date: 20161109
  Serious: Yes (Other)
  Sender: FDA-Public Use
  Company Number: PHHY2016AR123009

PATIENT
  Age: 80 Year
  Sex: Female

DRUGS (4)
  1. ONBREZ BREEZHALER [Suspect]
     Active Substance: INDACATEROL
     Indication: ASTHMA
  2. ONBREZ BREEZHALER [Suspect]
     Active Substance: INDACATEROL
     Indication: ASTHMATIC CRISIS
  3. ONBREZ BREEZHALER [Suspect]
     Active Substance: INDACATEROL
     Indication: COUGH
     Dosage: 1 DF, QD
     Route: 065
  4. ONBREZ BREEZHALER [Suspect]
     Active Substance: INDACATEROL
     Indication: BRONCHITIS
     Dosage: 2 DF, QD
     Route: 065
     Dates: start: 201602, end: 201603

REACTIONS (4)
  - Product use issue [Unknown]
  - Inappropriate schedule of drug administration [Unknown]
  - Cough [Recovering/Resolving]
  - Asthmatic crisis [Unknown]

NARRATIVE: CASE EVENT DATE: 201602
